FAERS Safety Report 9790683 (Version 2)
Quarter: 2014Q1

REPORT INFORMATION
  Report Type: Report from Study
  Country: JP (occurrence: JP)
  Receive Date: 20131231
  Receipt Date: 20140320
  Transmission Date: 20141002
  Serious: Yes (Hospitalization)
  Sender: FDA-Public Use
  Company Number: JP-GLAXOSMITHKLINE-B0953800A

PATIENT
  Age: 32 Year
  Sex: Male
  Weight: 74 kg

DRUGS (2)
  1. VOTRIENT 200MG [Suspect]
     Indication: DEDIFFERENTIATED LIPOSARCOMA
     Dosage: 800MG PER DAY
     Route: 048
     Dates: start: 20130827, end: 20130910
  2. VOTRIENT 200MG [Suspect]
     Indication: DEDIFFERENTIATED LIPOSARCOMA
     Dosage: 600MG PER DAY
     Route: 048
     Dates: start: 20130911, end: 20131211

REACTIONS (3)
  - Pulmonary embolism [Recovering/Resolving]
  - Syncope [Recovered/Resolved]
  - Nausea [Recovering/Resolving]
